FAERS Safety Report 7574127-X (Version None)
Quarter: 2011Q2

REPORT INFORMATION
  Report Type: 
  Country: None (occurrence: None)
  Receive Date: 20110627
  Receipt Date: 20110614
  Transmission Date: 20111010
  Serious: Yes (Hospitalization, Other)
  Sender: FDA-Public Use
  Company Number: PHHY2010EC46279

PATIENT
  Sex: Female
  Weight: 56 kg

DRUGS (2)
  1. GLEEVEC [Suspect]
     Indication: CHRONIC MYELOID LEUKAEMIA
     Dosage: 400 MG, QD
     Route: 048
     Dates: start: 20080525, end: 20100709
  2. GLEEVEC [Suspect]
     Dosage: 400 MG, PER DAY
     Route: 048
     Dates: start: 20110201

REACTIONS (6)
  - HEMIPLEGIA [None]
  - APHASIA [None]
  - GAIT DISTURBANCE [None]
  - DRUG EXPOSURE DURING PREGNANCY [None]
  - CEREBROVASCULAR ACCIDENT [None]
  - ABORTION SPONTANEOUS [None]
